FAERS Safety Report 16029950 (Version 1)
Quarter: 2019Q1

REPORT INFORMATION
  Report Type: Report from Study
  Country: GB (occurrence: GB)
  Receive Date: 20190304
  Receipt Date: 20190304
  Transmission Date: 20190418
  Serious: Yes (Other)
  Sender: FDA-Public Use
  Company Number: PHHY2019GB046303

PATIENT
  Sex: Female

DRUGS (3)
  1. DORNASE ALFA. [Concomitant]
     Active Substance: DORNASE ALFA
     Indication: PRODUCT USED FOR UNKNOWN INDICATION
     Dosage: 2.5 MG, QD
     Route: 055
  2. COLOBREATHE [Concomitant]
     Active Substance: COLISTIMETHATE SODIUM
     Indication: PRODUCT USED FOR UNKNOWN INDICATION
     Dosage: 1 DF, BID, 1.66MU BD ALTERNATE MONTHS
     Route: 055
  3. TOBI PODHALER [Suspect]
     Active Substance: TOBRAMYCIN
     Indication: CYSTIC FIBROSIS
     Dosage: 112 MG, BID (ALTERNATE MONTHS)
     Route: 055

REACTIONS (1)
  - Lung infection [Unknown]
